FAERS Safety Report 26047247 (Version 1)
Quarter: 2025Q4

REPORT INFORMATION
  Report Type: Spontaneous
  Country: US (occurrence: US)
  Receive Date: 20251114
  Receipt Date: 20251114
  Transmission Date: 20260117
  Serious: No
  Sender: ELI LILLY AND COMPANY
  Company Number: US-ELI_LILLY_AND_COMPANY-US202511012942

PATIENT
  Age: 65 Year
  Sex: Female

DRUGS (1)
  1. ZEPBOUND [Suspect]
     Active Substance: TIRZEPATIDE
     Indication: Weight control
     Dosage: 7.5 MG, UNKNOWN
     Route: 065
     Dates: start: 20251108

REACTIONS (6)
  - Lymphadenopathy [Unknown]
  - Chest pain [Unknown]
  - Pruritus [Unknown]
  - Abdominal pain upper [Unknown]
  - Abdominal distension [Unknown]
  - Injection site reaction [Unknown]

NARRATIVE: CASE EVENT DATE: 20251108
